FAERS Safety Report 9532253 (Version 2)
Quarter: 2013Q3

REPORT INFORMATION
  Report Type: Spontaneous
  Country: US (occurrence: US)
  Receive Date: 20130918
  Receipt Date: 20130918
  Transmission Date: 20140515
  Serious: Yes (Hospitalization)
  Sender: FDA-Public Use
  Company Number: US-BAXTER-2013BAX035230

PATIENT
  Age: 44 Year
  Sex: Female

DRUGS (4)
  1. DIANEAL LOW CALCIUM [Suspect]
     Indication: PERITONEAL DIALYSIS
     Route: 033
     Dates: start: 2012
  2. DIANEAL LOW CALCIUM [Suspect]
     Indication: PERITONEAL DIALYSIS
     Route: 033
     Dates: start: 2012
  3. ZANTAC [Suspect]
     Indication: GASTROOESOPHAGEAL REFLUX DISEASE
     Route: 048
  4. PRILOSEC [Concomitant]
     Indication: GASTROOESOPHAGEAL REFLUX DISEASE
     Route: 048

REACTIONS (1)
  - Colitis [Recovering/Resolving]
